FAERS Safety Report 5088459-0 (Version None)
Quarter: 2006Q3

REPORT INFORMATION
  Report Type: 
  Country: None (occurrence: None)
  Receive Date: 20060822
  Receipt Date: 20060809
  Transmission Date: 20061208
  Serious: Yes (Other)
  Sender: FDA-Public Use
  Company Number: 2006097930

PATIENT
  Age: 58 Year
  Sex: Male

DRUGS (2)
  1. VIAGRA [Suspect]
     Indication: DRUG USE FOR UNKNOWN INDICATION
     Dosage: ORAL
     Route: 048
     Dates: start: 20051101, end: 20060529
  2. LIPITOR [Concomitant]

REACTIONS (2)
  - EYE HAEMORRHAGE [None]
  - MACULAR DEGENERATION [None]
